FAERS Safety Report 9370656 (Version 1)
Quarter: 2013Q2

REPORT INFORMATION
  Report Type: Spontaneous
  Country: US (occurrence: US)
  Receive Date: 20130626
  Receipt Date: 20130626
  Transmission Date: 20140414
  Serious: Yes (Death)
  Sender: FDA-Public Use
  Company Number: US-CUBIST PHARMACEUTICALS, INC.-2013CBST000015

PATIENT
  Sex: 0

DRUGS (4)
  1. CUBICIN [Suspect]
     Indication: ENTEROCOCCAL BACTERAEMIA
     Dosage: 8.20 MG/KG, UNK
     Route: 065
  2. CUBICIN [Suspect]
     Indication: DEVICE RELATED INFECTION
  3. CUBICIN [Suspect]
     Indication: OFF LABEL USE
  4. GENTAMICIN [Concomitant]
     Indication: DEVICE RELATED INFECTION
     Dosage: UNK UNK, UNK
     Route: 065

REACTIONS (3)
  - Death [Fatal]
  - Antimicrobial susceptibility test resistant [Unknown]
  - Treatment failure [Unknown]
